FAERS Safety Report 10733091 (Version 1)
Quarter: 2015Q1

REPORT INFORMATION
  Report Type: Spontaneous
  Country: GB (occurrence: GB)
  Receive Date: 20150123
  Receipt Date: 20150123
  Transmission Date: 20150721
  Serious: Yes (Other)
  Sender: FDA-Public Use
  Company Number: GB-PFIZER INC-2015025305

PATIENT
  Age: 66 Year
  Sex: Female
  Weight: 62 kg

DRUGS (1)
  1. SERTRALINE HCL [Suspect]
     Active Substance: SERTRALINE HYDROCHLORIDE
     Indication: DEPRESSION
     Dosage: 150 MG, UNK
     Route: 048
     Dates: start: 200801, end: 20140925

REACTIONS (3)
  - Serum ferritin decreased [Unknown]
  - Melaena [Recovered/Resolved with Sequelae]
  - Gastritis [Unknown]

NARRATIVE: CASE EVENT DATE: 2014
